FAERS Safety Report 4886806-3 (Version None)
Quarter: 2006Q1

REPORT INFORMATION
  Report Type: 
  Country: None (occurrence: None)
  Receive Date: 20060119
  Receipt Date: 20060119
  Transmission Date: 20060701
  Serious: Yes (Other)
  Sender: FDA-Public Use
  Company Number: None

PATIENT
  Sex: Male
  Weight: 113.3993 kg

DRUGS (1)
  1. DIPRIVAN [Suspect]
     Indication: SEDATION
     Dosage: 10MG/ML  CONTINUOUS  IV DRIP
     Route: 041
     Dates: start: 20060113, end: 20060117

REACTIONS (1)
  - CHROMATURIA [None]
